FAERS Safety Report 15677862 (Version 1)
Quarter: 2018Q4

REPORT INFORMATION
  Report Type: Report from Study
  Country: US (occurrence: US)
  Receive Date: 20181130
  Receipt Date: 20181130
  Transmission Date: 20190205
  Serious: Yes (Hospitalization)
  Sender: FDA-Public Use
  Company Number: US-BAUSCH-BL-2018-033616

PATIENT
  Age: 51 Year
  Sex: Female
  Weight: 54.48 kg

DRUGS (2)
  1. XIFAXAN [Suspect]
     Active Substance: RIFAXIMIN
     Indication: GASTROINTESTINAL BACTERIAL OVERGROWTH
     Dosage: START DATE: YEARS AGO; 3 TIMES DAILY FOR 2 WEEKS EVERY MONTH
     Route: 048
     Dates: end: 2018
  2. XIFAXAN [Suspect]
     Active Substance: RIFAXIMIN
     Indication: OFF LABEL USE
     Route: 048
     Dates: start: 201809

REACTIONS (6)
  - Stress [Recovered/Resolved]
  - Product availability issue [Recovered/Resolved]
  - Gastrointestinal bacterial overgrowth [Recovered/Resolved]
  - Off label use [Not Recovered/Not Resolved]
  - Symptom recurrence [Recovered/Resolved]
  - Therapy cessation [Recovered/Resolved]

NARRATIVE: CASE EVENT DATE: 201804
